FAERS Safety Report 6746693-5 (Version None)
Quarter: 2010Q2

REPORT INFORMATION
  Report Type: 
  Country: None (occurrence: None)
  Receive Date: 20100528
  Receipt Date: 20100519
  Transmission Date: 20101027
  Serious: Yes (Other)
  Sender: FDA-Public Use
  Company Number: US-ROCHE-704898

PATIENT
  Sex: Male
  Weight: 69.9 kg

DRUGS (1)
  1. CAPECITABINE [Suspect]
     Indication: COLORECTAL CANCER
     Dosage: 1500 MG BID AM/PM X 14 DAYS; ROUTE: MOUTH
     Route: 048
     Dates: start: 20090109

REACTIONS (2)
  - DEAFNESS [None]
  - HYPOAESTHESIA [None]
